FAERS Safety Report 10261250 (Version 1)
Quarter: 2014Q2

REPORT INFORMATION
  Report Type: Spontaneous
  Country: US (occurrence: None)
  Receive Date: 20140623
  Receipt Date: 20140623
  Transmission Date: 20141212
  Serious: Yes (Other)
  Sender: FDA-Public Use
  Company Number: 2014P1004667

PATIENT
  Age: 23 Year
  Sex: Female

DRUGS (5)
  1. MYORISAN [Suspect]
     Indication: ACNE CYSTIC
     Dosage: 1X/DAY
     Dates: start: 20140505, end: 20140512
  2. KETOCONAZOLE SHAMPOO [Concomitant]
  3. TRIAMCINOLONE 0.1% LOTION [Concomitant]
  4. CLARITIN [Concomitant]
  5. UNSPECIFIED IUD [Concomitant]

REACTIONS (3)
  - Diarrhoea [None]
  - Abdominal pain upper [None]
  - Haematochezia [None]
